FAERS Safety Report 24013995 (Version 1)
Quarter: 2024Q2

REPORT INFORMATION
  Report Type: Spontaneous
  Country: US (occurrence: US)
  Receive Date: 20240626
  Receipt Date: 20240626
  Transmission Date: 20240715
  Serious: No
  Sender: FDA-Public Use
  Company Number: US-PADAGIS-2024PAD01056

PATIENT

DRUGS (1)
  1. KETOCONAZOLE [Suspect]
     Active Substance: KETOCONAZOLE
     Indication: Skin disorder
     Dosage: UNK
     Route: 065
     Dates: start: 20240522

REACTIONS (8)
  - Headache [Unknown]
  - Dizziness [Unknown]
  - Erythema [Unknown]
  - Application site pain [Unknown]
  - Alopecia [Unknown]
  - Application site pruritus [Unknown]
  - Hair texture abnormal [Unknown]
  - Product use in unapproved indication [Unknown]
